FAERS Safety Report 9735845 (Version 1)
Quarter: 2013Q4

REPORT INFORMATION
  Report Type: Spontaneous
  Country: US (occurrence: US)
  Receive Date: 20131206
  Receipt Date: 20131206
  Transmission Date: 20140711
  Serious: No
  Sender: FDA-Public Use
  Company Number: US-GILEAD-2009-0024021

PATIENT
  Sex: Female

DRUGS (17)
  1. LETAIRIS [Suspect]
     Indication: PULMONARY ARTERIAL HYPERTENSION
     Route: 048
     Dates: start: 20090721
  2. REVATIO [Concomitant]
  3. XANAX [Concomitant]
  4. PROMETHAZINE [Concomitant]
  5. ASPIRIN [Concomitant]
  6. LEXAPRO [Concomitant]
  7. FOLIC ACID [Concomitant]
  8. MULTIVITAMINS [Concomitant]
  9. LORTAB [Concomitant]
  10. TRAMADOL [Concomitant]
  11. NEURONTIN [Concomitant]
  12. IMURAN [Concomitant]
  13. PLAQUENIL [Concomitant]
  14. PREDNISONE [Concomitant]
  15. FOSAMAX [Concomitant]
  16. ZANAFLEX [Concomitant]
  17. NEXIUM [Concomitant]

REACTIONS (7)
  - Increased tendency to bruise [Not Recovered/Not Resolved]
  - Gingival bleeding [Not Recovered/Not Resolved]
  - Haematochezia [Not Recovered/Not Resolved]
  - Pyrexia [Not Recovered/Not Resolved]
  - Upper respiratory tract infection [Not Recovered/Not Resolved]
  - Sinusitis [Not Recovered/Not Resolved]
  - Nasal congestion [Not Recovered/Not Resolved]
